FAERS Safety Report 7657438-9 (Version None)
Quarter: 2011Q3

REPORT INFORMATION
  Report Type: 
  Country: None (occurrence: None)
  Receive Date: 20110804
  Receipt Date: 20110801
  Transmission Date: 20111222
  Serious: Yes (Death, Other)
  Sender: FDA-Public Use
  Company Number: US-CELGENEUS-163-21880-11020107

PATIENT
  Sex: Female

DRUGS (17)
  1. FERROUS SULFATE TAB [Concomitant]
     Route: 048
  2. OXYCONTIN [Concomitant]
     Dosage: 10 MILLIGRAM
     Route: 048
  3. DEXAMETHASONE [Concomitant]
     Dosage: 4 MILLIGRAM
     Route: 048
  4. REVLIMID [Suspect]
     Indication: MULTIPLE MYELOMA
     Dosage: 15 MILLIGRAM
     Route: 048
     Dates: start: 20100113, end: 20110113
  5. CARDURA [Concomitant]
     Route: 048
  6. NEURONTIN [Concomitant]
     Dosage: 100 MILLIGRAM
     Route: 048
  7. OXYCODONE/ACETAMINOPHEN [Concomitant]
     Dosage: 5MG-325MG
     Route: 048
  8. SYNTHROID [Concomitant]
     Route: 048
  9. PERCOCET [Concomitant]
     Route: 048
  10. PRBC TRANSFUSION [Concomitant]
     Route: 041
  11. NORVASC [Concomitant]
     Route: 048
  12. AREDIA [Concomitant]
     Route: 041
  13. LASIX [Concomitant]
     Route: 048
  14. ONDANSETRON [Concomitant]
     Dosage: 4 MILLIGRAM
     Route: 048
  15. AMLODIPINE [Concomitant]
     Dosage: 5 MILLIGRAM
     Route: 048
  16. ASPIRIN [Concomitant]
     Dosage: 325 MILLIGRAM
     Route: 048
  17. CYCLOBENZAPRINE [Concomitant]
     Dosage: 10 MILLIGRAM
     Route: 048

REACTIONS (4)
  - GASTROENTERITIS VIRAL [None]
  - MULTIPLE MYELOMA [None]
  - HAEMOGLOBIN DECREASED [None]
  - MUSCLE SPASMS [None]
